FAERS Safety Report 6504940-9 (Version None)
Quarter: 2009Q4

REPORT INFORMATION
  Report Type: 
  Country: None (occurrence: None)
  Receive Date: 20091218
  Receipt Date: 20091204
  Transmission Date: 20100525
  Serious: Yes (Death, Other)
  Sender: FDA-Public Use
  Company Number: GB-MYLANLABS-2009S1021072

PATIENT
  Age: 40 Year
  Sex: Male

DRUGS (8)
  1. DIAZEPAM [Suspect]
     Indication: DRUG USE FOR UNKNOWN INDICATION
  2. CITALOPRAM HYDROBROMIDE [Suspect]
     Indication: DRUG USE FOR UNKNOWN INDICATION
  3. TEMAZEPAM [Suspect]
     Indication: DRUG USE FOR UNKNOWN INDICATION
  4. OXYCODONE [Suspect]
     Indication: DRUG USE FOR UNKNOWN INDICATION
  5. MORPHINE [Suspect]
     Indication: DRUG USE FOR UNKNOWN INDICATION
  6. CODEINE [Suspect]
     Indication: DRUG USE FOR UNKNOWN INDICATION
  7. DESMETHYLDIAZEPAM [Suspect]
     Indication: DRUG USE FOR UNKNOWN INDICATION
  8. AMITRIPTYLINE [Suspect]
     Indication: DRUG USE FOR UNKNOWN INDICATION

REACTIONS (2)
  - INTENTIONAL OVERDOSE [None]
  - MALAISE [None]
